FAERS Safety Report 17243077 (Version 1)
Quarter: 2020Q1

REPORT INFORMATION
  Report Type: Spontaneous
  Country: GB (occurrence: GB)
  Receive Date: 20200107
  Receipt Date: 20200107
  Transmission Date: 20200409
  Serious: Yes (Other)
  Sender: FDA-Public Use
  Company Number: GB-TEVA-2019-GB-1162322

PATIENT
  Age: 33 Year
  Sex: Male
  Weight: 65 kg

DRUGS (2)
  1. DOXYCYCLINE CARRAGEENATE [Suspect]
     Active Substance: DOXYCYCLINE
     Indication: URINARY TRACT INFECTION
     Dosage: 200 MG
     Route: 048
     Dates: start: 20191130
  2. IBUPROFEN. [Concomitant]
     Active Substance: IBUPROFEN

REACTIONS (2)
  - Burning sensation [Unknown]
  - Tendon pain [Unknown]

NARRATIVE: CASE EVENT DATE: 20191203
